FAERS Safety Report 9152954 (Version 1)
Quarter: 2013Q1

REPORT INFORMATION
  Report Type: Report from Study
  Country: US (occurrence: US)
  Receive Date: 20130211
  Receipt Date: 20130211
  Transmission Date: 20140127
  Serious: Yes (Hospitalization, Other)
  Sender: FDA-Public Use
  Company Number: US-RB-006789-10

PATIENT
  Age: 26 Year
  Sex: Female

DRUGS (1)
  1. SUBOXONE TABLET [Suspect]
     Indication: DRUG DEPENDENCE
     Route: 060
     Dates: start: 201001, end: 2011

REACTIONS (7)
  - Drug dependence [Recovered/Resolved]
  - Hepatitis C [Not Recovered/Not Resolved]
  - Hepatic enzyme increased [Unknown]
  - Road traffic accident [Recovered/Resolved]
  - Femur fracture [Recovered/Resolved]
  - Ankle fracture [Recovered/Resolved]
  - Spinal fracture [Recovered/Resolved]
